FAERS Safety Report 8398690-4 (Version None)
Quarter: 2012Q2

REPORT INFORMATION
  Report Type: 
  Country: None (occurrence: None)
  Receive Date: 20120531
  Receipt Date: 20120523
  Transmission Date: 20120825
  Serious: Yes (Hospitalization)
  Sender: FDA-Public Use
  Company Number: FR-FRI-1000030832

PATIENT
  Sex: Male

DRUGS (8)
  1. PANTOPRAZOLE [Concomitant]
  2. PRAVASTATIN [Suspect]
     Dosage: 20 MG
     Route: 048
     Dates: end: 20120501
  3. PENTOXIFYLLINE [Concomitant]
  4. ASPIRIN [Concomitant]
  5. FLUTICASONE PROPIONATE/SALMETEROL [Concomitant]
  6. ZOLPIDEM TARTRATE [Concomitant]
  7. AMLODIPINE BESYLATE [Concomitant]
  8. NEBIVOLOL [Suspect]
     Dosage: 2.5 MG
     Route: 048
     Dates: end: 20120501

REACTIONS (1)
  - PULMONARY FIBROSIS [None]
